FAERS Safety Report 11801087 (Version 1)
Quarter: 2015Q4

REPORT INFORMATION
  Report Type: Other
  Country: US (occurrence: US)
  Receive Date: 20151204
  Receipt Date: 20151204
  Transmission Date: 20160305
  Serious: Yes (Death, Life-Threatening, Hospitalization)
  Sender: FDA-Public Use
  Company Number: US-LUPIN PHARMACEUTICALS INC.-2015-03898

PATIENT
  Age: 20 Year
  Sex: Male

DRUGS (1)
  1. ZIPRASIDONE. [Suspect]
     Active Substance: ZIPRASIDONE
     Indication: AUTISM
     Route: 065

REACTIONS (4)
  - Respiratory failure [Unknown]
  - Hyperosmolar hyperglycaemic state [Unknown]
  - Neuroleptic malignant syndrome [Fatal]
  - Shock [Fatal]
